FAERS Safety Report 7719477-9 (Version None)
Quarter: 2011Q3

REPORT INFORMATION
  Report Type: 
  Country: None (occurrence: None)
  Receive Date: 20110830
  Receipt Date: 20110817
  Transmission Date: 20111222
  Serious: Yes (Death)
  Sender: FDA-Public Use
  Company Number: -MYLANLABS-2011S1017159

PATIENT
  Age: 56 Year
  Sex: Female
  Weight: 50 kg

DRUGS (4)
  1. FOLIC ACID [Concomitant]
     Dosage: 0.4 MG/DAY
     Route: 065
  2. CARBOPLATIN [Suspect]
     Indication: NON-SMALL CELL LUNG CANCER METASTATIC
     Dosage: CALVERT AUC5 ON DAY 1
     Route: 042
  3. PEMETREXED [Suspect]
     Indication: NON-SMALL CELL LUNG CANCER METASTATIC
     Dosage: 500 MG/M2 ON DAY 1
     Route: 042
  4. VITAMIN B [Concomitant]
     Dosage: 1 AMPOULE
     Route: 030

REACTIONS (9)
  - ANAEMIA [None]
  - GASTRITIS [None]
  - NEUTROPENIA [None]
  - THROMBOCYTOPENIA [None]
  - DISSEMINATED INTRAVASCULAR COAGULATION [None]
  - SEPSIS [None]
  - INTESTINAL ULCER [None]
  - ASPERGILLOSIS [None]
  - ENTEROCOLITIS [None]
